FAERS Safety Report 23889404 (Version 6)
Quarter: 2024Q4

REPORT INFORMATION
  Report Type: Spontaneous
  Country: FR (occurrence: FR)
  Receive Date: 20240523
  Receipt Date: 20241018
  Transmission Date: 20250115
  Serious: Yes (Other)
  Sender: PFIZER
  Company Number: FR-ROCHE-3562158

PATIENT
  Age: 61 Year
  Sex: Male
  Weight: 133 kg

DRUGS (87)
  1. RITUXIMAB [Suspect]
     Active Substance: RITUXIMAB
     Indication: Diffuse large B-cell lymphoma
     Dosage: ON 30APR2024, HE RECEIVED THE MOST RECENT DOSE 750 MG OF STUDY DRUG RITUXIMAB PRIOR TO AE
     Route: 042
     Dates: start: 20240410
  2. RITUXIMAB [Suspect]
     Active Substance: RITUXIMAB
     Dosage: 750 MG (MOST RECENT DOSE PRIOR TO AE)
     Route: 042
     Dates: start: 20240430
  3. DOXORUBICIN HYDROCHLORIDE [Suspect]
     Active Substance: DOXORUBICIN HYDROCHLORIDE
     Indication: Diffuse large B-cell lymphoma
     Dosage: 100 MG, EVERY 3 WEEKS
     Route: 042
     Dates: start: 20240411
  4. DOXORUBICIN HYDROCHLORIDE [Suspect]
     Active Substance: DOXORUBICIN HYDROCHLORIDE
     Dosage: 100 MG (MOST RECENT DOSE PRIOR TO AE)
     Route: 042
     Dates: start: 20240430
  5. POLATUZUMAB VEDOTIN [Suspect]
     Active Substance: POLATUZUMAB VEDOTIN
     Indication: Diffuse large B-cell lymphoma
     Dosage: ON 30APR2024, HE RECEIVED THE MOST RECENT DOSE 240 MG OF STUDY DRUG POLATUZUMAB VEDOTIN PRIOR TO AE
     Route: 042
     Dates: start: 20240410
  6. POLATUZUMAB VEDOTIN [Suspect]
     Active Substance: POLATUZUMAB VEDOTIN
     Dosage: 240 MG (MOST RECENT DOSE PRIOR TO AE)
     Route: 042
     Dates: start: 20240430
  7. CYCLOPHOSPHAMIDE [Suspect]
     Active Substance: CYCLOPHOSPHAMIDE
     Indication: Diffuse large B-cell lymphoma
     Dosage: ON 30APR2024, HE RECEIVED THE MOST RECENT DOSE 1500 MG OF STUDY DRUG CYCLOPHOSPHAMIDE PRIOR TO AE
     Route: 042
     Dates: start: 20240411
  8. CYCLOPHOSPHAMIDE [Suspect]
     Active Substance: CYCLOPHOSPHAMIDE
     Dosage: 1500 MG (MOST RECENT DOSE PRIOR TO AE)
     Route: 042
     Dates: start: 20240430
  9. PREDNISONE [Suspect]
     Active Substance: PREDNISONE
     Indication: Diffuse large B-cell lymphoma
     Dosage: 100 MG, EVERY 3 WEEKS
     Route: 048
     Dates: start: 20240410
  10. GLOFITAMAB [Suspect]
     Active Substance: GLOFITAMAB
     Indication: Diffuse large B-cell lymphoma
     Dosage: 2.5 MG, WEEKLY
     Route: 042
     Dates: start: 20240507
  11. LEUCOVORIN [Concomitant]
     Active Substance: LEUCOVORIN\LEUCOVORIN CALCIUM
     Dosage: 25 MG, WEEKLY
     Route: 048
     Dates: start: 20240411
  12. APREPITANT [Concomitant]
     Active Substance: APREPITANT
     Indication: Nausea
     Dosage: 80 MG, 1X/DAY
     Route: 048
     Dates: start: 20240411, end: 20240411
  13. APREPITANT [Concomitant]
     Active Substance: APREPITANT
     Dosage: 125 MG, 1X/DAY
     Route: 048
     Dates: start: 20240430, end: 20240430
  14. APREPITANT [Concomitant]
     Active Substance: APREPITANT
     Dosage: 80 MG, 1X/DAY
     Route: 048
     Dates: start: 20240501, end: 20240502
  15. APREPITANT [Concomitant]
     Active Substance: APREPITANT
     Dosage: 125 MG, 1X/DAY
     Route: 048
     Dates: start: 20240522, end: 20240522
  16. APREPITANT [Concomitant]
     Active Substance: APREPITANT
     Dosage: 125 MG, 1X/DAY
     Route: 048
     Dates: start: 20240612, end: 20240612
  17. APREPITANT [Concomitant]
     Active Substance: APREPITANT
     Dosage: 125 MG, 1X/DAY
     Route: 048
     Dates: start: 20240724, end: 20240724
  18. FILGRASTIM [Concomitant]
     Active Substance: FILGRASTIM
     Dosage: 48000 IU, 1X/DAY
     Route: 058
     Dates: start: 20240415, end: 20240419
  19. FILGRASTIM [Concomitant]
     Active Substance: FILGRASTIM
     Dosage: 48000 IU, 1X/DAY
     Route: 058
     Dates: start: 20240505, end: 20240509
  20. FILGRASTIM [Concomitant]
     Active Substance: FILGRASTIM
     Dosage: 48000 IU, 1X/DAY
     Route: 058
     Dates: start: 20240527, end: 20240531
  21. FILGRASTIM [Concomitant]
     Active Substance: FILGRASTIM
     Dosage: 48000 IU, 1X/DAY
     Route: 058
     Dates: start: 20240617, end: 20240621
  22. FILGRASTIM [Concomitant]
     Active Substance: FILGRASTIM
     Dosage: 48000 IU, 1X/DAY
     Route: 058
     Dates: start: 20240729, end: 20240730
  23. FILGRASTIM [Concomitant]
     Active Substance: FILGRASTIM
     Dosage: 48000 IU, 1X/DAY
     Route: 058
     Dates: start: 20240801, end: 20240802
  24. ONDANSETRON [Concomitant]
     Active Substance: ONDANSETRON
     Dosage: 8 MG, EVERY 0.5 DAY
     Route: 042
     Dates: start: 20240410, end: 20240410
  25. ONDANSETRON [Concomitant]
     Active Substance: ONDANSETRON
     Dosage: 8 MG, 1X/DAY
     Route: 042
     Dates: start: 20240411, end: 20240411
  26. ONDANSETRON [Concomitant]
     Active Substance: ONDANSETRON
     Dosage: 8 MG, AS NEEDED
     Route: 048
     Dates: start: 20240430, end: 20240501
  27. ONDANSETRON [Concomitant]
     Active Substance: ONDANSETRON
     Dosage: 8 MG AS NECESSARY
     Route: 048
     Dates: start: 20240522, end: 20240522
  28. ONDANSETRON [Concomitant]
     Active Substance: ONDANSETRON
     Dosage: 8 MG AS NECESSARY
     Route: 048
     Dates: start: 20240612, end: 20240612
  29. ONDANSETRON [Concomitant]
     Active Substance: ONDANSETRON
     Dosage: 8 MG, AS NEEDED
     Route: 048
     Dates: start: 20240724, end: 20240724
  30. ACETAMINOPHEN [Concomitant]
     Active Substance: ACETAMINOPHEN
     Dosage: 1 G, 1X/DAY
     Route: 048
     Dates: start: 20240410, end: 20240410
  31. ACETAMINOPHEN [Concomitant]
     Active Substance: ACETAMINOPHEN
     Dosage: 1 G, 1X/DAY
     Route: 048
     Dates: start: 20240430, end: 20240430
  32. ACETAMINOPHEN [Concomitant]
     Active Substance: ACETAMINOPHEN
     Dosage: 1 G
     Route: 042
     Dates: start: 20240507, end: 20240507
  33. ACETAMINOPHEN [Concomitant]
     Active Substance: ACETAMINOPHEN
     Dosage: 1 G
     Route: 042
     Dates: start: 20240515, end: 20240515
  34. ACETAMINOPHEN [Concomitant]
     Active Substance: ACETAMINOPHEN
     Dosage: 1 G
     Route: 042
     Dates: start: 20240522, end: 20240522
  35. ACETAMINOPHEN [Concomitant]
     Active Substance: ACETAMINOPHEN
     Dosage: 1 G
     Route: 042
     Dates: start: 20240529, end: 20240529
  36. ACETAMINOPHEN [Concomitant]
     Active Substance: ACETAMINOPHEN
     Dosage: 1 G
     Route: 042
     Dates: start: 20240612, end: 20240612
  37. ACETAMINOPHEN [Concomitant]
     Active Substance: ACETAMINOPHEN
     Dosage: 1 G
     Route: 042
     Dates: start: 20240619, end: 20240619
  38. ACETAMINOPHEN [Concomitant]
     Active Substance: ACETAMINOPHEN
     Dosage: 1 G
     Route: 042
     Dates: start: 20240710, end: 20240710
  39. ACETAMINOPHEN [Concomitant]
     Active Substance: ACETAMINOPHEN
     Dosage: 1 G, 1X/DAY
     Route: 042
     Dates: start: 20240724, end: 20240724
  40. ACETAMINOPHEN [Concomitant]
     Active Substance: ACETAMINOPHEN
     Dosage: 1 G, 1X/DAY
     Route: 042
     Dates: start: 20240731, end: 20240731
  41. ACETAMINOPHEN [Concomitant]
     Active Substance: ACETAMINOPHEN
     Dosage: 1 G, 1X/DAY
     Route: 042
     Dates: start: 20240828, end: 20240828
  42. INDAPAMIDE\PERINDOPRIL ARGININE [Concomitant]
     Active Substance: INDAPAMIDE\PERINDOPRIL ARGININE
     Indication: Hypertension
     Dosage: 12.5 MG, 1X/DAY
     Route: 048
  43. NEBIVOLOL [Concomitant]
     Active Substance: NEBIVOLOL
     Indication: Hypertension
     Dosage: 5 MG, 1X/DAY
     Route: 048
  44. MORPHINE SULFATE [Concomitant]
     Active Substance: MORPHINE SULFATE
     Indication: Pain
     Dosage: 30 MG AS NECESSARY
     Route: 048
  45. MORPHINE SULFATE [Concomitant]
     Active Substance: MORPHINE SULFATE
     Dosage: 10 MG, 2X/DAY
     Route: 048
  46. METOCLOPRAMIDE [Concomitant]
     Active Substance: METOCLOPRAMIDE
     Indication: Nausea
     Dosage: 16.71 MG, 1X/DAY
     Route: 042
     Dates: start: 20240410, end: 20240410
  47. METOCLOPRAMIDE [Concomitant]
     Active Substance: METOCLOPRAMIDE
     Dosage: 10 MG, 1X/DAY
     Route: 048
     Dates: start: 20240411
  48. SYMBICORT [Concomitant]
     Active Substance: BUDESONIDE\FORMOTEROL FUMARATE DIHYDRATE
     Indication: Obstructive sleep apnoea syndrome
     Dosage: UNK, 1X/DAY
     Route: 048
  49. DEXCHLORPHENIRAMINE [Concomitant]
     Active Substance: DEXCHLORPHENIRAMINE
     Dosage: 5 MG, 1X/DAY
     Route: 042
     Dates: start: 20240410, end: 20240410
  50. DEXCHLORPHENIRAMINE [Concomitant]
     Active Substance: DEXCHLORPHENIRAMINE
     Dosage: 5 MG, 1X/DAY
     Route: 042
     Dates: start: 20240430, end: 20240430
  51. DEXCHLORPHENIRAMINE [Concomitant]
     Active Substance: DEXCHLORPHENIRAMINE
     Dosage: 5 MG, 1X/DAY
     Route: 042
     Dates: start: 20240507, end: 20240507
  52. DEXCHLORPHENIRAMINE [Concomitant]
     Active Substance: DEXCHLORPHENIRAMINE
     Dosage: 5 MG, 1X/DAY
     Route: 042
     Dates: start: 20240515, end: 20240515
  53. DEXCHLORPHENIRAMINE [Concomitant]
     Active Substance: DEXCHLORPHENIRAMINE
     Dosage: 5 MG, 1X/DAY
     Route: 042
     Dates: start: 20240522, end: 20240522
  54. DEXCHLORPHENIRAMINE [Concomitant]
     Active Substance: DEXCHLORPHENIRAMINE
     Dosage: 5 MG, 1X/DAY
     Route: 042
     Dates: start: 20240529, end: 20240529
  55. DEXCHLORPHENIRAMINE [Concomitant]
     Active Substance: DEXCHLORPHENIRAMINE
     Dosage: 5 MG, 1X/DAY
     Route: 042
     Dates: start: 20240612, end: 20240612
  56. DEXCHLORPHENIRAMINE [Concomitant]
     Active Substance: DEXCHLORPHENIRAMINE
     Dosage: 5 MG, 1X/DAY
     Route: 042
     Dates: start: 20240619, end: 20240619
  57. DEXCHLORPHENIRAMINE [Concomitant]
     Active Substance: DEXCHLORPHENIRAMINE
     Dosage: 5 MG, 1X/DAY
     Route: 042
     Dates: start: 20240710, end: 20240710
  58. DEXCHLORPHENIRAMINE [Concomitant]
     Active Substance: DEXCHLORPHENIRAMINE
     Dosage: 5 MG, 1X/DAY
     Route: 042
     Dates: start: 20240724, end: 20240724
  59. DEXCHLORPHENIRAMINE [Concomitant]
     Active Substance: DEXCHLORPHENIRAMINE
     Dosage: 5 MG, 1X/DAY
     Route: 042
     Dates: start: 20240828, end: 20240828
  60. SULFAMETHOXAZOLE [Concomitant]
     Active Substance: SULFAMETHOXAZOLE
     Dosage: 960 MG 3X/WEEK
     Route: 048
     Dates: start: 20240411
  61. VALACYCLOVIR HYDROCHLORIDE [Concomitant]
     Active Substance: VALACYCLOVIR HYDROCHLORIDE
     Dosage: 500 MG, 2X/DAY
     Route: 048
     Dates: start: 20240411
  62. MESNA [Concomitant]
     Active Substance: MESNA
     Dosage: 500 MG, EVERY 0.33 DAY
     Route: 042
     Dates: start: 20240411, end: 20240411
  63. MESNA [Concomitant]
     Active Substance: MESNA
     Dosage: 500 MG, 1X/DAY
     Route: 042
     Dates: start: 20240501, end: 20240501
  64. MESNA [Concomitant]
     Active Substance: MESNA
     Dosage: 500 MG, 1X/DAY
     Route: 048
     Dates: start: 20240522, end: 20240522
  65. MESNA [Concomitant]
     Active Substance: MESNA
     Dosage: 1000 MG, 2X/DAY
     Route: 042
     Dates: start: 20240522, end: 20240522
  66. MESNA [Concomitant]
     Active Substance: MESNA
     Dosage: 500 MG, 1X/DAY
     Route: 048
     Dates: start: 20240612, end: 20240612
  67. MESNA [Concomitant]
     Active Substance: MESNA
     Dosage: 1000 MG, 1X/DAY
     Route: 042
     Dates: start: 20240612, end: 20240612
  68. MESNA [Concomitant]
     Active Substance: MESNA
     Dosage: 500 MG, 1X/DAY
     Route: 042
     Dates: start: 20240724, end: 20240724
  69. MESNA [Concomitant]
     Active Substance: MESNA
     Dosage: 1000 MG, 2X/DAY
     Route: 048
     Dates: start: 20240724, end: 20240724
  70. LANSOPRAZOLE [Concomitant]
     Active Substance: LANSOPRAZOLE
     Dosage: 30 MG, 1X/DAY
     Route: 048
     Dates: start: 20240506, end: 20240506
  71. FUROSEMIDE [Concomitant]
     Active Substance: FUROSEMIDE
     Dosage: UNK, 1X/DAY
     Route: 048
     Dates: start: 20240507, end: 20240514
  72. POTASSIUM CHLORIDE [Concomitant]
     Active Substance: POTASSIUM CHLORIDE
     Dosage: 600 MG
     Route: 048
     Dates: start: 20240507
  73. POTASSIUM CHLORIDE [Concomitant]
     Active Substance: POTASSIUM CHLORIDE
     Dosage: 1000 MG
     Route: 048
     Dates: start: 20240507, end: 20240514
  74. POTASSIUM CHLORIDE [Concomitant]
     Active Substance: POTASSIUM CHLORIDE
     Dosage: 1000 MG
     Route: 048
     Dates: start: 20240724
  75. DEXAMETHASONE [Concomitant]
     Active Substance: DEXAMETHASONE
     Dosage: 20 MG, 1X/DAY
     Route: 042
     Dates: start: 20240507, end: 20240507
  76. DEXAMETHASONE [Concomitant]
     Active Substance: DEXAMETHASONE
     Dosage: 20 MG, 1X/DAY
     Route: 042
     Dates: start: 20240515, end: 20240515
  77. DEXAMETHASONE [Concomitant]
     Active Substance: DEXAMETHASONE
     Dosage: 20 MG, 1X/DAY
     Route: 042
     Dates: start: 20240529, end: 20240529
  78. DEXAMETHASONE [Concomitant]
     Active Substance: DEXAMETHASONE
     Dosage: 20 MG, 1X/DAY
     Route: 042
     Dates: start: 20240619, end: 20240619
  79. DEXAMETHASONE [Concomitant]
     Active Substance: DEXAMETHASONE
     Dosage: 20 MG, 1X/DAY
     Route: 042
     Dates: start: 20240710, end: 20240710
  80. DEXAMETHASONE [Concomitant]
     Active Substance: DEXAMETHASONE
     Dosage: 20 MG, 1X/DAY
     Route: 042
     Dates: start: 20240828, end: 20240828
  81. INNOVAIR [Concomitant]
     Active Substance: BECLOMETHASONE DIPROPIONATE\FORMOTEROL
     Dosage: UNK
     Dates: start: 20240506, end: 20240508
  82. MAGNE B6 [Concomitant]
     Active Substance: MAGNESIUM\PYRIDOXINE
     Indication: Hypomagnesaemia
     Dosage: UNK, 3X/DAY
     Route: 048
     Dates: start: 20240813
  83. FUNGIZONE [Concomitant]
     Active Substance: AMPHOTERICIN B
     Indication: Tongue fungal infection
     Dosage: UNK, 3X/DAY
     Route: 048
     Dates: start: 20240813
  84. CEFEPIME [Concomitant]
     Active Substance: CEFEPIME HYDROCHLORIDE
     Dosage: UNK UNK, 1X/DAY
     Dates: start: 20240921, end: 20240921
  85. LEVOFLOXACIN [Concomitant]
     Active Substance: LEVOFLOXACIN
     Dosage: UNK, 1X/DAY
     Route: 042
     Dates: start: 20240921, end: 20240921
  86. AMOXICILLIN SODIUM [Concomitant]
     Active Substance: AMOXICILLIN SODIUM
     Dosage: 2 G, 3X/DAY
     Route: 048
     Dates: start: 20240921, end: 20240929
  87. DELICAL BOISSON FRUITEE [Concomitant]
     Dosage: 200 ML, 1X/DAY
     Dates: start: 20240926

REACTIONS (1)
  - Hepatic cytolysis [Recovered/Resolved]

NARRATIVE: CASE EVENT DATE: 20240507
